FAERS Safety Report 5528322-1 (Version None)
Quarter: 2007Q4

REPORT INFORMATION
  Report Type: 
  Country: None (occurrence: None)
  Receive Date: 20071128
  Receipt Date: 20071121
  Transmission Date: 20080405
  Serious: Yes (Other)
  Sender: FDA-Public Use
  Company Number: GB-PFIZER INC-2007098723

PATIENT
  Age: 46 Year
  Sex: Female

DRUGS (8)
  1. CHAMPIX [Suspect]
     Indication: SMOKING CESSATION THERAPY
     Route: 048
     Dates: start: 20070928, end: 20071103
  2. ACETYLSALICYLIC ACID SRT [Concomitant]
     Route: 048
  3. CO-DYDRAMOL [Concomitant]
  4. FOLIC ACID [Concomitant]
     Route: 048
  5. METHOTREXATE [Concomitant]
     Route: 048
  6. METOPROLOL [Concomitant]
     Route: 048
  7. SIMVASTATIN [Concomitant]
  8. ETODOLAC [Concomitant]

REACTIONS (1)
  - PERICARDITIS [None]
